FAERS Safety Report 7865305-0 (Version None)
Quarter: 2011Q4

REPORT INFORMATION
  Report Type: 
  Country: None (occurrence: None)
  Receive Date: 20111028
  Receipt Date: 20101119
  Transmission Date: 20120403
  Serious: No
  Sender: FDA-Public Use
  Company Number: US-GLAXOSMITHKLINE-A0894271A

PATIENT
  Age: 58 Year
  Sex: Female

DRUGS (5)
  1. LEVAQUIN [Concomitant]
  2. ESTRADIOL [Concomitant]
  3. SPIRIVA [Concomitant]
  4. ADVAIR DISKUS 100/50 [Suspect]
     Indication: ASTHMA
     Route: 055
     Dates: start: 20101115, end: 20101118
  5. LISINOPRIL [Concomitant]

REACTIONS (7)
  - SUFFOCATION FEELING [None]
  - ADVERSE DRUG REACTION [None]
  - ABDOMINAL DISTENSION [None]
  - DIARRHOEA [None]
  - DIZZINESS [None]
  - VISION BLURRED [None]
  - OEDEMA [None]
